FAERS Safety Report 21989286 (Version 1)
Quarter: 2023Q1

REPORT INFORMATION
  Report Type: Spontaneous
  Country: BR (occurrence: BR)
  Receive Date: 20230214
  Receipt Date: 20230214
  Transmission Date: 20230417
  Serious: Yes (Other)
  Sender: FDA-Public Use
  Company Number: BR-CELLTRION INC.-2023BR002925

PATIENT

DRUGS (4)
  1. INFLIXIMAB [Suspect]
     Active Substance: INFLIXIMAB
     Indication: Psoriatic arthropathy
     Dosage: 2 AMPOULES -- EVERY 2 MONTHS BUT COULD NOT INFORM THE MILLIGRAMS
     Route: 042
     Dates: start: 20220802
  2. INFLIXIMAB [Suspect]
     Active Substance: INFLIXIMAB
     Indication: Rheumatoid arthritis
  3. METHOTREXATE [Concomitant]
     Active Substance: METHOTREXATE
     Indication: Rheumatic disorder
     Dosage: 1 CAPSULE PER WEEK, IN USE
     Route: 048
     Dates: start: 2006
  4. BARBEXACLONE [Concomitant]
     Active Substance: BARBEXACLONE
     Indication: Anaemia
     Dosage: 1 CAPSULE PER WEEK, IN USE
     Route: 048
     Dates: start: 2006

REACTIONS (6)
  - COVID-19 [Recovered/Resolved]
  - Joint swelling [Unknown]
  - Arthralgia [Unknown]
  - Product availability issue [Unknown]
  - Intentional dose omission [Unknown]
  - Therapy interrupted [Unknown]

NARRATIVE: CASE EVENT DATE: 20221223
